FAERS Safety Report 4352671-6 (Version None)
Quarter: 2004Q2

REPORT INFORMATION
  Report Type: 
  Country: None (occurrence: None)
  Receive Date: 20040504
  Receipt Date: 20040223
  Transmission Date: 20050107
  Serious: Yes (Hospitalization)
  Sender: FDA-Public Use
  Company Number: GB-BRISTOL-MYERS SQUIBB COMPANY-12514170

PATIENT
  Age: 57 Year
  Sex: Female

DRUGS (4)
  1. PACLITAXEL [Suspect]
     Indication: BREAST CANCER
     Dosage: INITIAL DOSE: 19-JAN-2004
     Route: 042
     Dates: start: 20040216, end: 20040216
  2. ATENOLOL [Concomitant]
  3. RAMIPRIL [Concomitant]
  4. ZOMORPH [Concomitant]

REACTIONS (2)
  - PERIPHERAL EMBOLISM [None]
  - PERIPHERAL ISCHAEMIA [None]
